FAERS Safety Report 8262263-4 (Version None)
Quarter: 2012Q2

REPORT INFORMATION
  Report Type: 
  Country: None (occurrence: None)
  Receive Date: 20120405
  Receipt Date: 20120330
  Transmission Date: 20120825
  Serious: Yes (Hospitalization)
  Sender: FDA-Public Use
  Company Number: AU-ROCHE-1055850

PATIENT
  Sex: Female
  Weight: 81.9 kg

DRUGS (7)
  1. HERCEPTIN [Suspect]
     Indication: BREAST CANCER
     Dosage: LOADING DOSE ON DAY 1 OF CYCLES 1 (SINGLE DOSE), ADMINISTERED OVER 30-60 MIN AS PER PROTOCOL.
     Route: 042
     Dates: start: 20091111, end: 20091111
  2. LEVOTHYROXINE SODIUM [Concomitant]
     Dates: start: 20090101, end: 20120123
  3. HERCEPTIN [Suspect]
     Dosage: MAINTENANCE DOSE, ADMINISTERED OVER 30-60 MIN CYCLES 2 - 6 AS PER PROTOCOL. LAST DOSE PRIOR TO SAE:
     Route: 042
     Dates: start: 20091202, end: 20100922
  4. CARBOPLATIN [Suspect]
     Indication: BREAST CANCER
     Dosage: 'AUC = 6 MG/ML/MIN IV OVER 30-60 MINUTES' DAY 1 OF CYCLES 1-6 (AS PER PROTOCOL). LAST DOSE PRIOR TO
     Route: 042
     Dates: start: 20091111, end: 20100204
  5. DOCETAXEL [Suspect]
     Indication: BREAST CANCER
     Dosage: DAY 1 OF CYCLES 1-6, ADMINISTERED OVER 60 MIN (AS PER PROTOCOL). LAST DOSE PRIOR TO SAE: 04/FEB/2010
     Route: 042
     Dates: start: 20091111, end: 20100204
  6. ACETAMINOPHEN [Concomitant]
     Dates: start: 20100705
  7. IBUPROFEN [Concomitant]
     Dates: start: 20100201

REACTIONS (1)
  - PERICARDITIS [None]
